FAERS Safety Report 5777506-6 (Version None)
Quarter: 2008Q2

REPORT INFORMATION
  Report Type: 
  Country: None (occurrence: None)
  Receive Date: 20080618
  Receipt Date: 20080610
  Transmission Date: 20081010
  Serious: Yes (Hospitalization)
  Sender: FDA-Public Use
  Company Number: US-AMGEN-US285868

PATIENT
  Sex: Male

DRUGS (3)
  1. PANITUMUMAB [Suspect]
     Indication: SQUAMOUS CELL CARCINOMA
     Route: 042
     Dates: start: 20080416
  2. DOCETAXEL [Suspect]
     Dates: end: 20080529
  3. CARBOPLATIN [Suspect]
     Dates: end: 20080529

REACTIONS (3)
  - BLOOD CULTURE POSITIVE [None]
  - GASTROINTESTINAL HAEMORRHAGE [None]
  - SEPSIS [None]
